FAERS Safety Report 7564995-X (Version None)
Quarter: 2011Q2

REPORT INFORMATION
  Report Type: 
  Country: None (occurrence: None)
  Receive Date: 20110622
  Receipt Date: 20110411
  Transmission Date: 20111010
  Serious: Yes (Death)
  Sender: FDA-Public Use
  Company Number: US-MYLANLABS-2011S1005858

PATIENT
  Age: 22 Year
  Sex: Female

DRUGS (7)
  1. RISPERDAL [Concomitant]
  2. DOXEPIN [Concomitant]
  3. CLOZAPINE [Suspect]
     Indication: SCHIZOPHRENIA
     Route: 048
     Dates: end: 20110201
  4. LITHIUM [Concomitant]
  5. CLONAZEPAM [Suspect]
     Dates: end: 20110209
  6. OXYCODONE HCL [Suspect]
     Dates: end: 20110209
  7. ZOLPIDEM TARTRATE [Suspect]
     Dates: end: 20110209

REACTIONS (2)
  - COMPLETED SUICIDE [None]
  - MULTIPLE DRUG OVERDOSE [None]
